FAERS Safety Report 14362720 (Version 1)
Quarter: 2018Q1

REPORT INFORMATION
  Report Type: Spontaneous
  Country: US (occurrence: US)
  Receive Date: 20180105
  Receipt Date: 20180105
  Transmission Date: 20180509
  Serious: Yes (Other)
  Sender: FDA-Public Use
  Company Number: None

PATIENT
  Age: 84 Year
  Sex: Female
  Weight: 69.84 kg

DRUGS (15)
  1. LACTOBACILLUS [Concomitant]
     Active Substance: LACTOBACILLUS ACIDOPHILUS
  2. NITROGLYCERIN. [Concomitant]
     Active Substance: NITROGLYCERIN
  3. VITAMIN C [Concomitant]
     Active Substance: ASCORBIC ACID
  4. ATROVENT [Concomitant]
     Active Substance: IPRATROPIUM BROMIDE
  5. OMEGA 3 [Concomitant]
     Active Substance: OMEGA-3 FATTY ACIDS
  6. DOCUSATE [Concomitant]
     Active Substance: DOCUSATE
  7. LOPRESSOR [Concomitant]
     Active Substance: METOPROLOL TARTRATE
  8. BIOTIN [Concomitant]
     Active Substance: BIOTIN
  9. FUROSEMIDE. [Concomitant]
     Active Substance: FUROSEMIDE
  10. GLUCOSAMINE [Concomitant]
     Active Substance: GLUCOSAMINE
  11. VITAMIN D3 [Concomitant]
     Active Substance: CHOLECALCIFEROL
  12. CYANOCOBALAMIN. [Concomitant]
     Active Substance: CYANOCOBALAMIN
  13. IBRANCE [Suspect]
     Active Substance: PALBOCICLIB
     Indication: BREAST CANCER
     Route: 048
     Dates: start: 20171128, end: 20180105
  14. CALCIUM CARBONATE. [Concomitant]
     Active Substance: CALCIUM CARBONATE
  15. LEVOTHYROXINE. [Concomitant]
     Active Substance: LEVOTHYROXINE

REACTIONS (1)
  - Disease progression [None]
